FAERS Safety Report 12839673 (Version 11)
Quarter: 2018Q2

REPORT INFORMATION
  Report Type: Spontaneous
  Country: US (occurrence: US)
  Receive Date: 20161012
  Receipt Date: 20180424
  Transmission Date: 20180711
  Serious: Yes (Other)
  Sender: FDA-Public Use
  Company Number: US-PFIZER INC-2016476617

PATIENT
  Age: 40 Year
  Sex: Female

DRUGS (2)
  1. XELJANZ [Suspect]
     Active Substance: TOFACITINIB CITRATE
     Dosage: 5 MG, UNK
     Dates: start: 201407
  2. XELJANZ [Suspect]
     Active Substance: TOFACITINIB CITRATE
     Dosage: 5 MG, UNK
     Dates: start: 201711

REACTIONS (17)
  - Joint swelling [Unknown]
  - Head injury [Unknown]
  - Generalised oedema [Unknown]
  - Intentional product misuse [Unknown]
  - Condition aggravated [Unknown]
  - Contusion [Unknown]
  - Tremor [Recovering/Resolving]
  - Limb injury [Unknown]
  - Back pain [Unknown]
  - Neck pain [Unknown]
  - Generalised tonic-clonic seizure [Unknown]
  - Impaired healing [Unknown]
  - Fall [Unknown]
  - Memory impairment [Unknown]
  - Chest pain [Unknown]
  - Fungal infection [Not Recovered/Not Resolved]
  - Pain [Not Recovered/Not Resolved]

NARRATIVE: CASE EVENT DATE: 201407
